FAERS Safety Report 6761374-X (Version None)
Quarter: 2010Q2

REPORT INFORMATION
  Report Type: 
  Country: None (occurrence: None)
  Receive Date: 20100607
  Receipt Date: 20100526
  Transmission Date: 20101027
  Serious: No
  Sender: FDA-Public Use
  Company Number: 009789

PATIENT
  Age: 87 Year
  Sex: Male

DRUGS (3)
  1. PLETAL [Suspect]
     Indication: CAROTID ARTERY STENOSIS
     Dosage: 100 MG, QPM, ORAL
     Route: 048
     Dates: start: 20100511, end: 20100511
  2. DIOVAN [Concomitant]
  3. CILNIDIPINE [Concomitant]

REACTIONS (1)
  - SHOCK [None]
